FAERS Safety Report 7944925-9 (Version None)
Quarter: 2011Q4

REPORT INFORMATION
  Report Type: 
  Country: None (occurrence: None)
  Receive Date: 20111129
  Receipt Date: 20111117
  Transmission Date: 20120403
  Serious: No
  Sender: FDA-Public Use
  Company Number: PHHY2011AR91299

PATIENT
  Sex: Female

DRUGS (6)
  1. TASIGNA [Suspect]
     Dosage: 400 MG, DAILY
     Route: 048
     Dates: start: 20110801
  2. TASIGNA [Suspect]
     Indication: CHRONIC MYELOID LEUKAEMIA
     Dosage: 800 MG, DAILY
     Route: 048
     Dates: start: 20110701
  3. TASIGNA [Suspect]
     Dosage: 800 MG DAILY
  4. CETRILER [Concomitant]
  5. TASIGNA [Suspect]
     Dosage: 600 MG, DAILY
     Route: 048
     Dates: start: 20110801
  6. DEXAMETHASONE [Concomitant]
     Dates: end: 20110901

REACTIONS (3)
  - FATIGUE [None]
  - RASH GENERALISED [None]
  - DERMATITIS ALLERGIC [None]
